FAERS Safety Report 25848675 (Version 1)
Quarter: 2025Q3

REPORT INFORMATION
  Report Type: Spontaneous
  Country: US (occurrence: US)
  Receive Date: 20250925
  Receipt Date: 20250925
  Transmission Date: 20251020
  Serious: No
  Sender: Unknown Manufacturer
  Company Number: US-MTPC-MTPA2025-0016990

PATIENT

DRUGS (3)
  1. BACLOFEN [Suspect]
     Active Substance: BACLOFEN
     Indication: Amyotrophic lateral sclerosis
     Route: 065
  2. RADICAVA [Suspect]
     Active Substance: EDARAVONE
     Indication: Amyotrophic lateral sclerosis
     Route: 065
  3. RILUZOLE [Suspect]
     Active Substance: RILUZOLE
     Indication: Amyotrophic lateral sclerosis
     Route: 065

REACTIONS (7)
  - Dysphagia [Unknown]
  - Dysphonia [Unknown]
  - Dysarthria [Unknown]
  - Tongue movement disturbance [Unknown]
  - Drug intolerance [Unknown]
  - Somnolence [Unknown]
  - Muscle spasms [Unknown]
